FAERS Safety Report 5395941-5 (Version None)
Quarter: 2007Q3

REPORT INFORMATION
  Report Type: 
  Country: None (occurrence: None)
  Receive Date: 20070724
  Receipt Date: 20070712
  Transmission Date: 20080115
  Serious: Yes (Hospitalization)
  Sender: FDA-Public Use
  Company Number: IT-PFIZER INC-2007057599

PATIENT
  Sex: Male
  Weight: 53 kg

DRUGS (7)
  1. SU-011,248 [Suspect]
     Indication: RENAL CELL CARCINOMA STAGE UNSPECIFIED
     Route: 048
     Dates: start: 20070531, end: 20070620
  2. ISOPTIN [Concomitant]
     Route: 048
     Dates: start: 20000101, end: 20070620
  3. CANDESARTAN CILEXETIL [Concomitant]
     Route: 048
     Dates: start: 20000101, end: 20070620
  4. SELEPARINA [Concomitant]
     Route: 058
  5. TAVOR [Concomitant]
     Route: 048
  6. CO-EFFERALGAN [Concomitant]
     Route: 048
  7. WARFARIN SODIUM [Concomitant]
     Route: 048
     Dates: start: 20000101, end: 20070531

REACTIONS (2)
  - BLOOD BILIRUBIN INCREASED [None]
  - CONFUSIONAL STATE [None]
